FAERS Safety Report 5337485-2 (Version None)
Quarter: 2007Q2

REPORT INFORMATION
  Report Type: 
  Country: None (occurrence: None)
  Receive Date: 20070529
  Receipt Date: 20070517
  Transmission Date: 20071010
  Serious: Yes (Other)
  Sender: FDA-Public Use
  Company Number: AR-PFIZER INC-2007031334

PATIENT
  Sex: Male
  Weight: 130 kg

DRUGS (2)
  1. SUTENT [Suspect]
     Indication: RENAL CELL CARCINOMA STAGE UNSPECIFIED
     Route: 048
     Dates: start: 20070328
  2. SUTENT [Suspect]
     Dates: start: 20070405

REACTIONS (6)
  - EPISTAXIS [None]
  - GENITAL BURNING SENSATION [None]
  - GENITAL PAIN [None]
  - LIP DRY [None]
  - RASH [None]
  - SKIN LESION [None]
